FAERS Safety Report 7182844-9 (Version None)
Quarter: 2010Q4

REPORT INFORMATION
  Report Type: 
  Country: None (occurrence: None)
  Receive Date: 20101222
  Receipt Date: 20101216
  Transmission Date: 20110411
  Serious: Yes (Hospitalization, Other)
  Sender: FDA-Public Use
  Company Number: US-BIOGENIDEC-2010BI032120

PATIENT
  Sex: Male

DRUGS (21)
  1. AVONEX [Suspect]
     Indication: MULTIPLE SCLEROSIS
     Route: 030
     Dates: start: 20020225
  2. EFFEXOR [Concomitant]
  3. ATENOLOL [Concomitant]
     Route: 048
  4. ATENOLOL [Concomitant]
  5. LOMOTIL [Concomitant]
  6. FISH OIL [Concomitant]
  7. PREDNISONE [Concomitant]
  8. LEVOTHYROXINE [Concomitant]
  9. METFORMIN HCL [Concomitant]
     Route: 048
  10. METFORMIN HCL [Concomitant]
     Route: 048
  11. PREVACID [Concomitant]
     Route: 048
  12. ACCOLATE [Concomitant]
  13. ACCOLATE [Concomitant]
  14. ADVAIR DISKUS 250/50 [Concomitant]
     Route: 055
  15. ADVAIR DISKUS 250/50 [Concomitant]
     Route: 055
  16. ASPIRIN [Concomitant]
  17. SOLU-MEDROL [Concomitant]
     Indication: ASTHMA
     Route: 042
  18. BONIVA [Concomitant]
  19. PROAIR HFA [Concomitant]
     Route: 055
  20. FLOMAX [Concomitant]
  21. VITAMIN D [Concomitant]

REACTIONS (4)
  - ACUTE MYOCARDIAL INFARCTION [None]
  - ANGINA UNSTABLE [None]
  - ARTERIOSCLEROSIS CORONARY ARTERY [None]
  - MYOCARDIAL INFARCTION [None]
